FAERS Safety Report 15743889 (Version 2)
Quarter: 2019Q1

REPORT INFORMATION
  Report Type: Report from Study
  Country: US (occurrence: US)
  Receive Date: 20181220
  Receipt Date: 20190117
  Transmission Date: 20190417
  Serious: Yes (Hospitalization, Other)
  Sender: FDA-Public Use
  Company Number: US-GILEAD-2018-0381174

PATIENT
  Age: 75 Year
  Sex: Female

DRUGS (13)
  1. LANTUS [Concomitant]
     Active Substance: INSULIN GLARGINE
  2. DIGOX [DIGOXIN] [Concomitant]
  3. JANUVIA [Concomitant]
     Active Substance: SITAGLIPTIN PHOSPHATE
  4. METFORMIN [Concomitant]
     Active Substance: METFORMIN HYDROCHLORIDE
  5. METOPROLOL TARTRATE. [Concomitant]
     Active Substance: METOPROLOL TARTRATE
  6. TORSEMIDE. [Concomitant]
     Active Substance: TORSEMIDE
  7. HUMALOG [Concomitant]
     Active Substance: INSULIN LISPRO
  8. MIDODRINE [Concomitant]
     Active Substance: MIDODRINE
  9. SIMVASTATIN. [Concomitant]
     Active Substance: SIMVASTATIN
  10. ADCIRCA [Suspect]
     Active Substance: TADALAFIL
     Indication: PULMONARY ARTERIAL HYPERTENSION
     Dosage: 40 MG, QD
     Route: 065
     Dates: start: 20180212
  11. SILDENAFIL. [Concomitant]
     Active Substance: SILDENAFIL
  12. WARFARIN [Concomitant]
     Active Substance: WARFARIN
  13. AMBRISENTAN [Suspect]
     Active Substance: AMBRISENTAN
     Indication: PULMONARY ARTERIAL HYPERTENSION
     Dosage: 10 MG, QD
     Route: 065
     Dates: start: 20180212

REACTIONS (2)
  - Fluid retention [Not Recovered/Not Resolved]
  - Pericardial effusion [Unknown]

NARRATIVE: CASE EVENT DATE: 20181213
